FAERS Safety Report 5125321-9 (Version None)
Quarter: 2006Q4

REPORT INFORMATION
  Report Type: 
  Country: None (occurrence: None)
  Receive Date: 20061006
  Receipt Date: 20060925
  Transmission Date: 20070319
  Serious: Yes (Hospitalization, Other)
  Sender: FDA-Public Use
  Company Number: 2006109049

PATIENT
  Age: 59 Year
  Sex: Male
  Weight: 108.8633 kg

DRUGS (20)
  1. GABAPENTIN [Suspect]
     Indication: NEUROPATHY PERIPHERAL
  2. NEURONTIN [Suspect]
     Indication: DRUG USE FOR UNKNOWN INDICATION
  3. AMITRIPTYLINE HCL [Concomitant]
  4. METFORMIN HCL [Concomitant]
  5. LESCOL [Concomitant]
  6. LYRICA [Suspect]
     Indication: NEUROPATHY PERIPHERAL
     Dosage: (50MG)
     Dates: start: 20060101
  7. CYMBALTA [Suspect]
     Indication: DEPRESSION
  8. ZETIA [Concomitant]
  9. BISOPROLOL FUMARATE [Concomitant]
  10. SEROQUEL [Concomitant]
  11. COLCHICUM JTL LIQ [Concomitant]
  12. SULFASALAZINE [Concomitant]
  13. BACLOFEN [Concomitant]
  14. NIFEDIPINE [Concomitant]
  15. ADVAIR DISKUS 100/50 [Concomitant]
  16. CLONIDINE [Concomitant]
  17. XANAX [Concomitant]
  18. CYCLOSPORINE [Concomitant]
  19. XALATAN [Concomitant]
  20. KETAMINE (KETAMINE) [Concomitant]

REACTIONS (14)
  - BENIGN PROSTATIC HYPERPLASIA [None]
  - BREAKTHROUGH PAIN [None]
  - CARDIAC VALVE DISEASE [None]
  - DEPRESSION [None]
  - DIZZINESS [None]
  - DRUG INEFFECTIVE [None]
  - DRUG TOXICITY [None]
  - FEELING ABNORMAL [None]
  - HAEMORRHAGE [None]
  - MYOCARDIAL INFARCTION [None]
  - PAIN [None]
  - RENAL FAILURE [None]
  - SPONDYLOLYSIS [None]
  - UNEVALUABLE EVENT [None]
